FAERS Safety Report 6248065-9 (Version None)
Quarter: 2009Q2

REPORT INFORMATION
  Report Type: 
  Country: None (occurrence: None)
  Receive Date: 20090628
  Receipt Date: 20090618
  Transmission Date: 20091009
  Serious: Yes (Death)
  Sender: FDA-Public Use
  Company Number: CA-ALLERGAN-0908760US

PATIENT

DRUGS (1)
  1. BOTOX [Suspect]
     Indication: DRUG USE FOR UNKNOWN INDICATION
     Dosage: 200 UNITS, SINGLE
     Route: 030
     Dates: start: 20090101, end: 20090101

REACTIONS (3)
  - DEATH [None]
  - JAUNDICE [None]
  - OEDEMA PERIPHERAL [None]
